FAERS Safety Report 14632136 (Version 20)
Quarter: 2021Q3

REPORT INFORMATION
  Report Type: Spontaneous
  Country: US (occurrence: US)
  Receive Date: 20180313
  Receipt Date: 20210903
  Transmission Date: 20211014
  Serious: Yes (Hospitalization, Other)
  Sender: FDA-Public Use
  Company Number: US-PFIZER INC-2018074500

PATIENT
  Age: 85 Year
  Sex: Female
  Weight: 63 kg

DRUGS (8)
  1. LYRICA [Suspect]
     Active Substance: PREGABALIN
     Indication: NEUROPATHY PERIPHERAL
     Dosage: 100 MG, 2X/DAY
     Route: 048
  2. CELEBREX [Concomitant]
     Active Substance: CELECOXIB
     Indication: ARTHRITIS
     Dosage: 200 MG, ALTERNATE DAY
     Route: 048
  3. PANTOPRAZOLE [Concomitant]
     Active Substance: PANTOPRAZOLE
     Indication: OESOPHAGEAL DISORDER
     Dosage: 40 MG, 2X/DAY (ONE CAPSULE BEFORE BREAKFAST AND ONE BEFORE DINNER)
     Route: 048
  4. LYRICA [Suspect]
     Active Substance: PREGABALIN
     Indication: NERVE INJURY
     Dosage: 100 MG, 3X/DAY
     Route: 048
  5. CELEBREX [Concomitant]
     Active Substance: CELECOXIB
     Indication: PAIN
  6. LYRICA [Suspect]
     Active Substance: PREGABALIN
     Indication: FIBROMYALGIA
     Dosage: 50 MG, 2X/DAY
  7. LYRICA [Suspect]
     Active Substance: PREGABALIN
     Dosage: 100 MG, 3X/DAY
     Route: 048
  8. SYNTHROID [Concomitant]
     Active Substance: LEVOTHYROXINE SODIUM
     Indication: THYROID DISORDER
     Dosage: 50 UG, 1X/DAY (EVERY MORNING)
     Route: 048

REACTIONS (16)
  - Intentional product use issue [Unknown]
  - Eye disorder [Unknown]
  - Myocardial infarction [Unknown]
  - Drug ineffective [Unknown]
  - Somnolence [Unknown]
  - Pneumothorax [Unknown]
  - Dysphonia [Unknown]
  - Intentional product use issue [Unknown]
  - Sleep disorder [Unknown]
  - Abdominal adhesions [Unknown]
  - Weight increased [Unknown]
  - Fatigue [Unknown]
  - Gastrointestinal necrosis [Unknown]
  - Hernia [Unknown]
  - Localised infection [Unknown]
  - Nervousness [Unknown]

NARRATIVE: CASE EVENT DATE: 201712
